FAERS Safety Report 23062353 (Version 2)
Quarter: 2023Q4

REPORT INFORMATION
  Report Type: Spontaneous
  Country: US (occurrence: US)
  Receive Date: 20231013
  Receipt Date: 20231228
  Transmission Date: 20240110
  Serious: No
  Sender: FDA-Public Use
  Company Number: US-PFIZER INC-PV202300168796

PATIENT
  Age: 43 Year
  Sex: Female
  Weight: 63.492 kg

DRUGS (2)
  1. XELJANZ [Suspect]
     Active Substance: TOFACITINIB CITRATE
     Dosage: UNK
     Dates: start: 202308
  2. IRON [Concomitant]
     Active Substance: IRON
     Dosage: UNK
     Dates: start: 201809

REACTIONS (4)
  - Abdominal discomfort [Unknown]
  - Amnesia [Unknown]
  - Migraine [Unknown]
  - Disturbance in attention [Unknown]
